FAERS Safety Report 5716174-6 (Version None)
Quarter: 2008Q2

REPORT INFORMATION
  Report Type: 
  Country: None (occurrence: None)
  Receive Date: 20080422
  Receipt Date: 20080410
  Transmission Date: 20081010
  Serious: Yes (Other)
  Sender: FDA-Public Use
  Company Number: GXKR2008CH03516

PATIENT
  Age: 71 Year
  Sex: Female
  Weight: 93 kg

DRUGS (8)
  1. METFIN (NGX)(METFORMIN) UNKNOWN [Suspect]
     Dosage: 1000 MG, OD, ORAL
     Route: 048
     Dates: start: 20070401, end: 20080225
  2. XENICAL [Suspect]
     Dosage: 1 DF, TID, ORAL
     Route: 048
     Dates: start: 20040901, end: 20080218
  3. ACETAMINOPHEN [Suspect]
     Indication: INFLUENZA
     Dosage: 1.5 DF/DAY
     Dates: start: 20080201, end: 20080201
  4. RESYL PLUS (CODEINE PHOSPHATE, GUAIFENESIN) [Concomitant]
  5. ATACAND PLUS /SCH/ (CANDESARTAN CILEXETIL, HYDROCHLOROTHIAZIDE) TABLET [Concomitant]
  6. ATENOLOL (ATENOLOL) COATED TABLET, 100 MG [Concomitant]
  7. NIFEDICOR (NIFEDIPINE) [Concomitant]
  8. ASPIRIN [Concomitant]

REACTIONS (12)
  - ALANINE AMINOTRANSFERASE INCREASED [None]
  - ANOREXIA [None]
  - ASPARTATE AMINOTRANSFERASE INCREASED [None]
  - BLOOD ALKALINE PHOSPHATASE INCREASED [None]
  - CHROMATURIA [None]
  - FATIGUE [None]
  - GALLBLADDER ENLARGEMENT [None]
  - GAMMA-GLUTAMYLTRANSFERASE INCREASED [None]
  - INFLUENZA [None]
  - JAUNDICE [None]
  - LIVER FUNCTION TEST ABNORMAL [None]
  - PAIN IN EXTREMITY [None]
